FAERS Safety Report 16737537 (Version 3)
Quarter: 2019Q4

REPORT INFORMATION
  Report Type: Spontaneous
  Country: US (occurrence: US)
  Receive Date: 20190823
  Receipt Date: 20191016
  Transmission Date: 20200122
  Serious: No
  Sender: FDA-Public Use
  Company Number: US-AMAG PHARMACEUTICALS, INC.-AMAG201903927

PATIENT
  Age: 34 Year
  Sex: Female

DRUGS (2)
  1. PRENATAL MULTIVITAMIN [Concomitant]
     Indication: PRODUCT USED FOR UNKNOWN INDICATION
     Route: 065
  2. MAKENA [Suspect]
     Active Substance: HYDROXYPROGESTERONE CAPROATE
     Indication: PREMATURE DELIVERY
     Dosage: 275MG/1.1ML
     Route: 058
     Dates: start: 20190620

REACTIONS (10)
  - Muscle spasms [Unknown]
  - Musculoskeletal stiffness [Unknown]
  - Road traffic accident [Unknown]
  - Injection site swelling [Unknown]
  - Cellulitis [Unknown]
  - Injection site pruritus [Unknown]
  - Pain in extremity [Unknown]
  - Injection site mass [Unknown]
  - Injection site warmth [Unknown]
  - Vomiting [Unknown]

NARRATIVE: CASE EVENT DATE: 20190723
